FAERS Safety Report 4808688-8 (Version None)
Quarter: 2005Q4

REPORT INFORMATION
  Report Type: 
  Country: None (occurrence: None)
  Receive Date: 20051021
  Receipt Date: 20020109
  Transmission Date: 20060501
  Serious: Yes (Other)
  Sender: FDA-Public Use
  Company Number: DE_020107720

PATIENT
  Age: 24 Year
  Sex: Female
  Weight: 45 kg

DRUGS (3)
  1. ZYPREXA [Suspect]
     Indication: DELUSIONAL DISORDER, PERSECUTORY TYPE
     Dosage: 15 MG/DAY
     Dates: start: 20010731, end: 20010820
  2. EUNERPAN (MELOPERONE HYDROCHLORIDE) [Concomitant]
  3. XIMOVAN (ZOPICLONE) [Concomitant]

REACTIONS (1)
  - NEUTROPENIA [None]
